FAERS Safety Report 15058924 (Version 1)
Quarter: 2018Q2

REPORT INFORMATION
  Report Type: Spontaneous
  Country: JP (occurrence: JP)
  Receive Date: 20180625
  Receipt Date: 20180625
  Transmission Date: 20180711
  Serious: Yes (Hospitalization, Other)
  Sender: FDA-Public Use
  Company Number: JP-GLAXOSMITHKLINE-JP2018JPN108197

PATIENT
  Age: 6 Decade
  Sex: Female

DRUGS (5)
  1. PREDNISOLONE. [Suspect]
     Active Substance: PREDNISOLONE
     Indication: INTERSTITIAL LUNG DISEASE
     Dosage: 250 MG, 1D
     Route: 048
  2. PREDNISOLONE. [Suspect]
     Active Substance: PREDNISOLONE
     Dosage: 40 MG, 1D
     Route: 048
  3. PREDNISOLONE. [Suspect]
     Active Substance: PREDNISOLONE
     Dosage: 10 MG, 1D
     Route: 048
  4. LITHIUM CARBONATE. [Concomitant]
     Active Substance: LITHIUM CARBONATE
     Dosage: UNK
  5. LAMICTAL [Suspect]
     Active Substance: LAMOTRIGINE
     Indication: BIPOLAR DISORDER
     Dosage: UNK
     Route: 048

REACTIONS (12)
  - Thinking abnormal [Recovering/Resolving]
  - Interstitial lung disease [Recovering/Resolving]
  - Insomnia [Recovering/Resolving]
  - Respiratory failure [Recovering/Resolving]
  - Anger [Recovering/Resolving]
  - Logorrhoea [Recovering/Resolving]
  - Disorientation [Recovering/Resolving]
  - Impulse-control disorder [Recovering/Resolving]
  - Substance-induced psychotic disorder [Recovering/Resolving]
  - Pyrexia [Recovering/Resolving]
  - Amnesia [Recovering/Resolving]
  - Euphoric mood [Recovering/Resolving]
